FAERS Safety Report 7751495-7 (Version None)
Quarter: 2011Q3

REPORT INFORMATION
  Report Type: 
  Country: None (occurrence: None)
  Receive Date: 20110914
  Receipt Date: 20110901
  Transmission Date: 20111222
  Serious: Yes (Other)
  Sender: FDA-Public Use
  Company Number: PHHY2011FR78854

PATIENT
  Sex: Male

DRUGS (2)
  1. ALTEISDUO [Concomitant]
     Indication: HYPERTENSION
  2. AREDIA [Suspect]
     Indication: COMPLEX REGIONAL PAIN SYNDROME
     Dosage: UNK

REACTIONS (4)
  - PYREXIA [None]
  - SKIN MASS [None]
  - INFLUENZA LIKE ILLNESS [None]
  - ARTHRITIS REACTIVE [None]
